FAERS Safety Report 21609238 (Version 1)
Quarter: 2022Q4

REPORT INFORMATION
  Report Type: Spontaneous
  Country: CN (occurrence: CN)
  Receive Date: 20221117
  Receipt Date: 20221117
  Transmission Date: 20230113
  Serious: Yes (Other)
  Sender: FDA-Public Use
  Company Number: CN-SA-SAC20221116001270

PATIENT
  Age: 67 Year
  Sex: Male

DRUGS (6)
  1. OXALIPLATIN [Suspect]
     Active Substance: OXALIPLATIN
     Indication: Gallbladder cancer
     Dosage: 150 MG, QD
     Route: 041
     Dates: start: 20221026, end: 20221026
  2. GEMCITABINE HYDROCHLORIDE [Suspect]
     Active Substance: GEMCITABINE HYDROCHLORIDE
     Indication: Gallbladder cancer
     Dosage: 1.8 G, QD
     Route: 041
     Dates: start: 20221026, end: 20221026
  3. TISLELIZUMAB [Concomitant]
     Active Substance: TISLELIZUMAB
     Indication: Immunomodulatory therapy
     Dosage: 200 MG
  4. DONAFENIB TOSILATE [Concomitant]
     Indication: Targeted cancer therapy
  5. SODIUM CHLORIDE [Concomitant]
     Active Substance: SODIUM CHLORIDE
     Indication: Vehicle solution use
     Dosage: 100 ML, QD
     Route: 041
     Dates: start: 20221026, end: 20221026
  6. DEXTROSE [Concomitant]
     Active Substance: DEXTROSE
     Indication: Vehicle solution use
     Dosage: 500 ML, QD
     Route: 041
     Dates: start: 20221026, end: 20221026

REACTIONS (1)
  - Lip ulceration [Recovering/Resolving]

NARRATIVE: CASE EVENT DATE: 20221027
